FAERS Safety Report 15928929 (Version 2)
Quarter: 2019Q1

REPORT INFORMATION
  Report Type: Report from Study
  Country: MX (occurrence: MX)
  Receive Date: 20190206
  Receipt Date: 20190210
  Transmission Date: 20190417
  Serious: Yes (Hospitalization, Other)
  Sender: FDA-Public Use
  Company Number: PHHY2019MX027690

PATIENT
  Age: 71 Year
  Sex: Female
  Weight: 60 kg

DRUGS (2)
  1. EXFORGE HCT [Suspect]
     Active Substance: AMLODIPINE BESYLATE\HYDROCHLOROTHIAZIDE\VALSARTAN
     Indication: HYPERTENSION
     Dosage: 1 DF(AMLODIPINE 5 MG HYDROCHLOROTHIAZIDE 12.5 MG VALSARTAN 160 MG), QD
     Route: 048
     Dates: start: 20190118
  2. CO-DIOVAN [Suspect]
     Active Substance: HYDROCHLOROTHIAZIDE\VALSARTAN
     Indication: HYPERTENSION
     Dosage: 1 DF (HYDROCHLOROTHIAZIDE 12.5 MG VALSARTAN 160 MG), QD
     Route: 048
     Dates: start: 2011, end: 20190117

REACTIONS (3)
  - Syncope [Unknown]
  - Dehydration [Unknown]
  - Kidney infection [Unknown]

NARRATIVE: CASE EVENT DATE: 20190119
